FAERS Safety Report 8485679-X (Version None)
Quarter: 2012Q3

REPORT INFORMATION
  Report Type: 
  Country: None (occurrence: None)
  Receive Date: 20120703
  Receipt Date: 20120629
  Transmission Date: 20120928
  Serious: Yes (Life-Threatening, Disabling, Other)
  Sender: FDA-Public Use
  Company Number: US-ASTRAZENECA-2012SE44427

PATIENT
  Sex: Male

DRUGS (1)
  1. CRESTOR [Suspect]
     Route: 048
     Dates: start: 20070101

REACTIONS (7)
  - ABASIA [None]
  - SKIN DISCOLOURATION [None]
  - RHABDOMYOLYSIS [None]
  - LIMB DISCOMFORT [None]
  - DYSSTASIA [None]
  - QUALITY OF LIFE DECREASED [None]
  - MYALGIA [None]
